FAERS Safety Report 10434677 (Version 1)
Quarter: 2014Q2

REPORT INFORMATION
  Report Type: Spontaneous
  Country: US (occurrence: None)
  Receive Date: 20140514
  Receipt Date: 20140514
  Transmission Date: 20141212
  Serious: Yes (Hospitalization, Other)
  Sender: FDA-Public Use
  Company Number: 094929U

PATIENT
  Sex: Female

DRUGS (1)
  1. CIMZIA [Suspect]
     Indication: CROHN^S DISEASE
     Dosage: 400 MG 1X/4 WEEKS, 400 MG EVERY 4 WEEKS SUBCUTANEOUS
     Route: 058
     Dates: start: 20111102

REACTIONS (7)
  - Fatigue [None]
  - Asthenia [None]
  - Colitis [None]
  - Haematocrit decreased [None]
  - C-reactive protein increased [None]
  - Red blood cell sedimentation rate increased [None]
  - Drug ineffective [None]
